FAERS Safety Report 20812383 (Version 1)
Quarter: 2022Q2

REPORT INFORMATION
  Report Type: Spontaneous
  Country: GB (occurrence: GB)
  Receive Date: 20220511
  Receipt Date: 20220511
  Transmission Date: 20220721
  Serious: Yes (Disabling, Other)
  Sender: FDA-Public Use
  Company Number: None

PATIENT
  Age: 32 Year
  Sex: Female
  Weight: 59.41 kg

DRUGS (2)
  1. ELOCON [Suspect]
     Active Substance: MOMETASONE FUROATE
     Indication: Eczema
     Dosage: UNK UNK, PRN
     Route: 061
     Dates: start: 19900101, end: 20190708
  2. BETNOVATE [Suspect]
     Active Substance: BETAMETHASONE
     Indication: Eczema
     Dosage: UNK UNK, PRN
     Route: 061
     Dates: start: 19900101, end: 20190708

REACTIONS (10)
  - Peripheral swelling [Unknown]
  - Dry skin [Recovering/Resolving]
  - Steroid withdrawal syndrome [Unknown]
  - Erythema [Recovering/Resolving]
  - Skin weeping [Recovering/Resolving]
  - Skin exfoliation [Recovering/Resolving]
  - Skin burning sensation [Recovering/Resolving]
  - Pruritus [Recovering/Resolving]
  - Abnormal loss of weight [Recovering/Resolving]
  - Alopecia [Recovering/Resolving]

NARRATIVE: CASE EVENT DATE: 20190708
